FAERS Safety Report 22357311 (Version 1)
Quarter: 2023Q2

REPORT INFORMATION
  Report Type: Spontaneous
  Country: CN (occurrence: CN)
  Receive Date: 20230524
  Receipt Date: 20230524
  Transmission Date: 20230722
  Serious: Yes (Hospitalization)
  Sender: FDA-Public Use
  Company Number: CN-TEVA-2023-CN-2890113

PATIENT
  Age: 47 Year
  Sex: Female
  Weight: 58.2 kg

DRUGS (3)
  1. BENDAMUSTINE [Suspect]
     Active Substance: BENDAMUSTINE
     Indication: Chemotherapy
     Dosage: 150 MILLIGRAM DAILY;
     Route: 041
     Dates: start: 20230402, end: 20230403
  2. POLIVY [Concomitant]
     Active Substance: POLATUZUMAB VEDOTIN-PIIQ
     Indication: Chemotherapy
     Dosage: 120 MILLIGRAM DAILY; 120MG/D D1
     Dates: start: 20230401, end: 20230403
  3. RITUXIMAB [Concomitant]
     Active Substance: RITUXIMAB
     Indication: Chemotherapy
     Dosage: 600 MILLIGRAM DAILY; 600MG/D D2
     Dates: start: 20230401, end: 20230403

REACTIONS (1)
  - Myelosuppression [Recovering/Resolving]

NARRATIVE: CASE EVENT DATE: 20230412
